FAERS Safety Report 10221183 (Version 1)
Quarter: 2014Q2

REPORT INFORMATION
  Report Type: Spontaneous
  Country: US (occurrence: US)
  Receive Date: 20140606
  Receipt Date: 20140606
  Transmission Date: 20141212
  Serious: No
  Sender: FDA-Public Use
  Company Number: US-GLAXOSMITHKLINE-A1063355A

PATIENT
  Age: 63 Year
  Sex: Female

DRUGS (10)
  1. BREO ELLIPTA [Suspect]
     Indication: CHRONIC OBSTRUCTIVE PULMONARY DISEASE
     Dosage: 1PUFF PER DAY
     Route: 055
     Dates: start: 20140211
  2. SPIRIVA [Concomitant]
  3. ALBUTEROL [Concomitant]
  4. NABUMETONE [Concomitant]
  5. AMITRIPTYLINE [Concomitant]
  6. SINGULAIR [Concomitant]
  7. LUMIGAN [Concomitant]
  8. PRO-AIR [Concomitant]
  9. COMBIVENT [Concomitant]
  10. POLYETHYLENE GLYCOL [Concomitant]

REACTIONS (2)
  - Dyspnoea [Recovering/Resolving]
  - Drug dispensing error [Unknown]
